FAERS Safety Report 18027705 (Version 3)
Quarter: 2020Q3

REPORT INFORMATION
  Report Type: Not Available
  Country: US (occurrence: US)
  Receive Date: 20200715
  Receipt Date: 20200818
  Transmission Date: 20201103
  Serious: Yes (Hospitalization, Other)
  Sender: FDA-Public Use
  Company Number: US-NEUROCRINE BIOSCIENCES INC.-2020NBI02352

PATIENT
  Age: 79 Year
  Sex: Female

DRUGS (1)
  1. INGREZZA [Suspect]
     Active Substance: VALBENAZINE
     Indication: TARDIVE DYSKINESIA
     Route: 048
     Dates: start: 202004

REACTIONS (10)
  - Deep vein thrombosis [Unknown]
  - Pneumonia [Unknown]
  - Pleural effusion [Unknown]
  - Renal cyst [Unknown]
  - Pulmonary embolism [Unknown]
  - Hiatus hernia [Unknown]
  - Acute respiratory failure [Unknown]
  - Memory impairment [Recovered/Resolved]
  - Diverticulitis [Recovered/Resolved]
  - Aortic arteriosclerosis [Unknown]

NARRATIVE: CASE EVENT DATE: 2020
